FAERS Safety Report 7683777-1 (Version None)
Quarter: 2011Q3

REPORT INFORMATION
  Report Type: 
  Country: None (occurrence: None)
  Receive Date: 20110810
  Receipt Date: 20110803
  Transmission Date: 20111222
  Serious: Yes (Death)
  Sender: FDA-Public Use
  Company Number: GB-ACCORD-009373

PATIENT
  Sex: Female

DRUGS (4)
  1. TOPIRAMATE [Suspect]
     Indication: EPILEPSY
     Dosage: ORAL
     Route: 048
  2. PHENOBARBITAL TAB [Suspect]
     Indication: EPILEPSY
  3. VALPROATE SODIUM [Suspect]
     Indication: EPILEPSY
  4. CARBAMAZEPINE [Suspect]
     Indication: EPILEPSY

REACTIONS (1)
  - STATUS EPILEPTICUS [None]
